FAERS Safety Report 6639692-5 (Version None)
Quarter: 2010Q1

REPORT INFORMATION
  Report Type: 
  Country: None (occurrence: None)
  Receive Date: 20100315
  Receipt Date: 20100301
  Transmission Date: 20100710
  Serious: Yes (Other)
  Sender: FDA-Public Use
  Company Number: 390001M10TUR

PATIENT
  Age: 30 Year
  Sex: Female

DRUGS (1)
  1. CETROTIDE (CETRORELIX ACETATE FOR INJECTION) (CETRORELIX ACETATE) [Suspect]
     Indication: INFERTILITY

REACTIONS (2)
  - ANAPHYLACTIC SHOCK [None]
  - SYNCOPE [None]
